FAERS Safety Report 9215377 (Version 2)
Quarter: 2013Q4

REPORT INFORMATION
  Report Type: Spontaneous
  Country: US (occurrence: US)
  Receive Date: 20130405
  Receipt Date: 20131126
  Transmission Date: 20140711
  Serious: Yes (Death, Hospitalization)
  Sender: FDA-Public Use
  Company Number: US-B.I. PHARMACEUTICALS,INC./RIDGEFIELD-2013-BI-09313BP

PATIENT
  Sex: Male
  Weight: 108.86 kg

DRUGS (4)
  1. PRADAXA [Suspect]
     Indication: ATRIAL FIBRILLATION
     Dosage: 150 MG
     Route: 048
     Dates: start: 20110228, end: 20110404
  2. BACITRACIN OINTMENT [Concomitant]
     Route: 061
  3. CALCIUM [Concomitant]
  4. MULTIVITAMIN [Concomitant]

REACTIONS (2)
  - Cerebral haemorrhage [Fatal]
  - Coagulopathy [Not Recovered/Not Resolved]
